FAERS Safety Report 8787344 (Version 4)
Quarter: 2013Q2

REPORT INFORMATION
  Report Type: Spontaneous
  Country: US (occurrence: US)
  Receive Date: 20120914
  Receipt Date: 20130626
  Transmission Date: 20140414
  Serious: Yes (Hospitalization, Disabling, Other)
  Sender: FDA-Public Use
  Company Number: US-009507513-1205USA04973

PATIENT
  Sex: Female
  Weight: 66.67 kg

DRUGS (7)
  1. FOSAMAX [Suspect]
     Indication: OSTEOPOROSIS
     Dosage: UNK
     Route: 048
     Dates: start: 1997, end: 2009
  2. FOSAMAX [Suspect]
     Dosage: 10 MG, QD
     Route: 048
     Dates: start: 19970722
  3. FOSAMAX [Suspect]
     Dosage: 70 MG, QW
     Route: 048
     Dates: start: 20020722
  4. FOSAMAX PLUS D [Suspect]
     Dosage: 70/2800 MG, QW
     Route: 048
     Dates: start: 20070316
  5. FOSAMAX [Suspect]
     Dosage: 70 MG, UNK
     Route: 048
     Dates: start: 20090420
  6. FOSAMAX [Suspect]
     Indication: OSTEOPOROSIS
     Dosage: 75 ML, QW
     Route: 048
     Dates: start: 20051209
  7. FLONASE [Concomitant]
     Indication: HYPERSENSITIVITY

REACTIONS (47)
  - Osteotomy [Unknown]
  - Femur fracture [Unknown]
  - Haematocrit decreased [Unknown]
  - Lymphadenectomy [Unknown]
  - Mastectomy [Unknown]
  - Alanine aminotransferase increased [Unknown]
  - Intramedullary rod insertion [Recovered/Resolved]
  - Bone marrow transplant [Unknown]
  - Open reduction of fracture [Recovered/Resolved]
  - Accident at work [Unknown]
  - Femur fracture [Recovered/Resolved]
  - Femur fracture [Recovered/Resolved]
  - Impaired healing [Unknown]
  - Rib fracture [Unknown]
  - Hyperlipidaemia [Unknown]
  - Fracture malunion [Unknown]
  - Fracture malunion [Unknown]
  - Somnolence [Unknown]
  - Anxiety disorder [Unknown]
  - Treatment failure [Unknown]
  - Breast inflammation [Unknown]
  - Exostosis [Unknown]
  - Osteopenia [Unknown]
  - Osteoarthritis [Unknown]
  - Pulmonary fibrosis [Unknown]
  - Atelectasis [Unknown]
  - Paranasal sinus mucosal hypertrophy [Unknown]
  - Osteoarthritis [Unknown]
  - Eczema [Unknown]
  - Anxiety disorder [Unknown]
  - Intervertebral disc disorder [Unknown]
  - Arthropathy [Unknown]
  - Osteoarthritis [Unknown]
  - Dyspnoea [Unknown]
  - Wheezing [Unknown]
  - Pain [Unknown]
  - Malaise [Unknown]
  - Fatigue [Unknown]
  - Spinal osteoarthritis [Unknown]
  - Osteoarthritis [Unknown]
  - Chronic sinusitis [Not Recovered/Not Resolved]
  - Osteoarthritis [Unknown]
  - Muscle spasms [Unknown]
  - Abdominal discomfort [Unknown]
  - Drug ineffective [Unknown]
  - Bone pain [Unknown]
  - Rash [Unknown]
